FAERS Safety Report 13373600 (Version 4)
Quarter: 2017Q2

REPORT INFORMATION
  Report Type: Report from Study
  Country: DE (occurrence: DE)
  Receive Date: 20170327
  Receipt Date: 20170602
  Transmission Date: 20170830
  Serious: Yes (Hospitalization, Other)
  Sender: FDA-Public Use
  Company Number: DE-VIFOR (INTERNATIONAL) INC.-VIT-2017-03069

PATIENT
  Age: 77 Year
  Sex: Female
  Weight: 60.2 kg

DRUGS (33)
  1. QUERTO [Concomitant]
  2. PANTOPRAZOLE SODIUM SESQUIHYDRATE [Concomitant]
     Active Substance: PANTOPRAZOLE SODIUM
  3. OSVAREN [Concomitant]
     Active Substance: CALCIUM ACETATE\MAGNESIUM CARBONATE
     Indication: CHRONIC KIDNEY DISEASE
     Dates: start: 20160427
  4. AMLODIPINE [Concomitant]
     Active Substance: AMLODIPINE BESYLATE
  5. SIMVASTATIN. [Concomitant]
     Active Substance: SIMVASTATIN
  6. HEPARIN-NATRIUM 7500 FS [Concomitant]
     Dosage: 7500 IE
     Dates: start: 20160722, end: 20160822
  7. EPOETIN ALFA [Concomitant]
     Active Substance: ERYTHROPOIETIN
     Indication: CHRONIC KIDNEY DISEASE
     Dosage: 6000 IE
     Dates: start: 20160307
  8. NOVALGIN [Concomitant]
     Active Substance: METAMIZOLE SODIUM
  9. METAMIZOLE MAGNESIUM [Concomitant]
     Active Substance: METAMIZOLE MAGNESIUM
  10. FORTIMEL RENAL [Concomitant]
  11. URAPIDIL [Concomitant]
     Active Substance: URAPIDIL
  12. DECOSTRIOL [Concomitant]
     Active Substance: CALCITRIOL
     Indication: CHRONIC KIDNEY DISEASE
     Dates: start: 20160224
  13. ENALAPRIL [Concomitant]
     Active Substance: ENALAPRIL
  14. DEKRISTOL [Concomitant]
     Active Substance: CHOLECALCIFEROL
  15. MAGNESIUM [Concomitant]
     Active Substance: MAGNESIUM
  16. MELPERON [Concomitant]
     Active Substance: MELPERONE
  17. LEVETIRACETAM. [Concomitant]
     Active Substance: LEVETIRACETAM
  18. HYDROCORTISONE. [Concomitant]
     Active Substance: HYDROCORTISONE
  19. ZEMPLAR [Concomitant]
     Active Substance: PARICALCITOL
     Indication: CHRONIC KIDNEY DISEASE
     Dates: start: 20160613
  20. ASA [Concomitant]
     Active Substance: ASPIRIN
     Indication: CHRONIC KIDNEY DISEASE
     Dates: start: 20160719
  21. AMLODIPINE [Concomitant]
     Active Substance: AMLODIPINE BESYLATE
  22. VITARENAL [Concomitant]
  23. PREDNISOLONE. [Concomitant]
     Active Substance: PREDNISOLONE
  24. ZOCOR FORTE [Concomitant]
  25. TRAMADOL. [Concomitant]
     Active Substance: TRAMADOL
  26. CANDESARTAN. [Concomitant]
     Active Substance: CANDESARTAN
  27. VELPHORO [Suspect]
     Active Substance: FERRIC OXYHYDROXIDE
     Indication: HYPERPHOSPHATAEMIA
     Route: 048
     Dates: start: 20160817, end: 20170215
  28. FERRLECIT [Concomitant]
     Active Substance: SODIUM FERRIC GLUCONATE COMPLEX
     Indication: CHRONIC KIDNEY DISEASE
     Dates: start: 20160223, end: 20160826
  29. RENVELA [Concomitant]
     Active Substance: SEVELAMER CARBONATE
     Indication: CHRONIC KIDNEY DISEASE
     Dates: start: 20160415
  30. GODAMED TAH [Concomitant]
  31. ALLOPURINOL. [Concomitant]
     Active Substance: ALLOPURINOL
  32. DEKRISTOL [Concomitant]
     Active Substance: CHOLECALCIFEROL
  33. ASPIRIN. [Concomitant]
     Active Substance: ASPIRIN

REACTIONS (2)
  - Haematemesis [Recovered/Resolved]
  - Gastrointestinal haemorrhage [Recovered/Resolved]

NARRATIVE: CASE EVENT DATE: 20170107
